FAERS Safety Report 6298622-9 (Version None)
Quarter: 2009Q3

REPORT INFORMATION
  Report Type: 
  Country: None (occurrence: None)
  Receive Date: 20090805
  Receipt Date: 20090723
  Transmission Date: 20100115
  Serious: Yes (Hospitalization, Other)
  Sender: FDA-Public Use
  Company Number: 2005AL000020

PATIENT
  Age: 59 Year
  Sex: Male
  Weight: 87.0906 kg

DRUGS (16)
  1. METOCLOPRAMIDE TABLETS USP, 10 MG (PUREPAC) [Suspect]
     Indication: GASTROOESOPHAGEAL REFLUX DISEASE
     Dosage: 10 MG; QID
     Dates: start: 20000808, end: 20030718
  2. METOCLOPRAMIDE ORAL SOLUTION USP, EQ. 5 MG BASE/5 [Suspect]
     Indication: GASTROOESOPHAGEAL REFLUX DISEASE
     Route: 048
     Dates: start: 20000808, end: 20030718
  3. REGLAN [Suspect]
     Indication: GASTROOESOPHAGEAL REFLUX DISEASE
     Dates: start: 20000808, end: 20030718
  4. PREVACID [Concomitant]
  5. COMBIVENT [Concomitant]
  6. CELEXA [Concomitant]
  7. CARAFATE [Concomitant]
  8. LORAZEPAM [Concomitant]
  9. DARVOCET-N 100 [Concomitant]
  10. PRILOSEC [Concomitant]
  11. TORADOL [Concomitant]
  12. MORPHINE [Concomitant]
  13. NORFLEX [Concomitant]
  14. MEDROL [Concomitant]
  15. PERCOCET [Concomitant]
  16. VALIUM [Concomitant]

REACTIONS (81)
  - ABDOMINAL PAIN [None]
  - ANXIETY [None]
  - APNOEA [None]
  - ARTHRALGIA [None]
  - ATAXIA [None]
  - BACK PAIN [None]
  - BLOOD BILIRUBIN ABNORMAL [None]
  - BLOOD CHOLESTEROL INCREASED [None]
  - BLOOD GLUCOSE INCREASED [None]
  - BRADYCARDIA [None]
  - BRONCHITIS [None]
  - BRUXISM [None]
  - CEREBRAL ATROPHY [None]
  - CHEST PAIN [None]
  - CHRONIC OBSTRUCTIVE PULMONARY DISEASE [None]
  - COLONOSCOPY ABNORMAL [None]
  - CONSTIPATION [None]
  - CONVULSION [None]
  - DEMENTIA [None]
  - DENTURE WEARER [None]
  - DEPRESSED LEVEL OF CONSCIOUSNESS [None]
  - DEPRESSION [None]
  - DISORIENTATION [None]
  - DISTURBANCE IN ATTENTION [None]
  - DIZZINESS [None]
  - DYSARTHRIA [None]
  - DYSPEPSIA [None]
  - DYSPHONIA [None]
  - ERECTILE DYSFUNCTION [None]
  - EXTRAPYRAMIDAL DISORDER [None]
  - EYE IRRITATION [None]
  - FALL [None]
  - FLAT AFFECT [None]
  - GINGIVAL PAIN [None]
  - GINGIVAL ULCERATION [None]
  - GLAUCOMA [None]
  - HAEMATOCRIT DECREASED [None]
  - HAEMOGLOBIN DECREASED [None]
  - HAEMOPTYSIS [None]
  - HEADACHE [None]
  - HYPERLIPIDAEMIA [None]
  - HYPERTENSION [None]
  - HYPOAESTHESIA [None]
  - INCOHERENT [None]
  - INSOMNIA [None]
  - JOINT RANGE OF MOTION DECREASED [None]
  - JOINT STIFFNESS [None]
  - JOINT SWELLING [None]
  - KERATOCONJUNCTIVITIS SICCA [None]
  - LARYNGOSPASM [None]
  - LOSS OF CONSCIOUSNESS [None]
  - MEMORY IMPAIRMENT [None]
  - MOOD ALTERED [None]
  - NERVE INJURY [None]
  - OEDEMA PERIPHERAL [None]
  - OESOPHAGITIS [None]
  - ORAL PAIN [None]
  - OROPHARYNGEAL PAIN [None]
  - PAIN [None]
  - PAIN IN EXTREMITY [None]
  - PAIN IN JAW [None]
  - PALPITATIONS [None]
  - PANIC ATTACK [None]
  - PERIORBITAL HAEMATOMA [None]
  - QUALITY OF LIFE DECREASED [None]
  - RED BLOOD CELL COUNT DECREASED [None]
  - RESTLESSNESS [None]
  - RETCHING [None]
  - SELF ESTEEM DECREASED [None]
  - SKIN LESION [None]
  - SOCIAL PHOBIA [None]
  - SOMNOLENCE [None]
  - SPUTUM DISCOLOURED [None]
  - SYNCOPE [None]
  - TACHYCARDIA [None]
  - TARDIVE DYSKINESIA [None]
  - TINNITUS [None]
  - TREMOR [None]
  - TRISMUS [None]
  - VOMITING [None]
  - WEIGHT DECREASED [None]
